FAERS Safety Report 10062484 (Version 1)
Quarter: 2014Q2

REPORT INFORMATION
  Report Type: Spontaneous
  Country: GB (occurrence: GB)
  Receive Date: 20140407
  Receipt Date: 20140407
  Transmission Date: 20141212
  Serious: Yes (Other)
  Sender: FDA-Public Use
  Company Number: GB-ASTRAZENECA-2014SE21468

PATIENT
  Age: 73 Year
  Sex: Male
  Weight: 87.1 kg

DRUGS (18)
  1. RANITIDINE [Concomitant]
     Dates: start: 20131125
  2. SALBUTAMOL [Concomitant]
     Dates: start: 20140120, end: 20140217
  3. ZEMTARD MR [Concomitant]
     Dates: start: 20131125
  4. BUDESONIDE [Suspect]
     Route: 055
     Dates: start: 20140210
  5. ALLOPURINOL [Concomitant]
     Dates: start: 20131125
  6. ASPIRIN [Concomitant]
     Dates: start: 20131125
  7. ATORVASTATIN [Concomitant]
     Dates: start: 20131125
  8. CO-FLUAMPICIL [Concomitant]
     Dates: start: 20140204, end: 20140211
  9. COLCHICINE [Concomitant]
     Dates: start: 20140120, end: 20140130
  10. ISOSORBIDE MONONITRATE [Concomitant]
     Dates: start: 20131125
  11. LACTULOSE [Concomitant]
     Dates: start: 20131125, end: 20131225
  12. LACTULOSE [Concomitant]
     Dates: start: 20140213, end: 20140315
  13. MACROGOL [Concomitant]
     Dates: start: 20140120, end: 20140219
  14. MOXONIDINE [Concomitant]
     Dates: start: 20131125
  15. NICORANDIL [Concomitant]
     Dates: start: 20131125
  16. PREDNISOLONE [Concomitant]
     Dates: start: 20140204, end: 20140209
  17. QVAR [Concomitant]
     Dates: start: 20131125
  18. RAMIPRIL [Concomitant]
     Dates: start: 20131125

REACTIONS (3)
  - Headache [Recovering/Resolving]
  - Cough [Unknown]
  - Petechiae [Recovering/Resolving]
